FAERS Safety Report 7518611-3 (Version None)
Quarter: 2011Q2

REPORT INFORMATION
  Report Type: 
  Country: None (occurrence: None)
  Receive Date: 20110602
  Receipt Date: 20110519
  Transmission Date: 20111010
  Serious: Yes (Other)
  Sender: FDA-Public Use
  Company Number: US-BAYER-201021206NA

PATIENT
  Age: 18 Year
  Sex: Female

DRUGS (11)
  1. EFFEXOR [Concomitant]
  2. ZONISAMIDE [Concomitant]
     Indication: MIGRAINE
  3. YAZ [Suspect]
     Indication: CONTRACEPTION
     Dosage: UNK UNK, QD
     Route: 048
     Dates: start: 20071101
  4. YASMIN [Suspect]
     Indication: PRODUCT USED FOR UNKNOWN INDICATION
     Route: 048
     Dates: start: 20071101
  5. LEVONORGESTREL + ETHINYL ESTRADIOL [Concomitant]
     Dates: start: 20080407, end: 20081008
  6. XOPENEX [Concomitant]
  7. DROSPIRENONE AND ETHINYL ESTRADIOL [Suspect]
     Route: 048
     Dates: start: 20071101
  8. ADVAIR DISKUS 100/50 [Concomitant]
  9. LEVALBUTEROL HYDROCHLORIDE [Concomitant]
  10. VENLAFAXINE [Concomitant]
  11. ORAL CONTRACEPTIVE NOS [Concomitant]
     Dosage: UNK
     Dates: start: 20080407, end: 20090108

REACTIONS (1)
  - THROMBOSIS [None]
